FAERS Safety Report 4316439-9 (Version None)
Quarter: 2004Q1

REPORT INFORMATION
  Report Type: 
  Country: None (occurrence: None)
  Receive Date: 20040312
  Receipt Date: 20040218
  Transmission Date: 20041129
  Serious: Yes (Other)
  Sender: FDA-Public Use
  Company Number: JP-BRISTOL-MYERS SQUIBB COMPANY-12516258

PATIENT
  Age: 90 Year
  Sex: Female

DRUGS (2)
  1. GATIFLO TABS 100 MG [Suspect]
     Indication: CYSTITIS
     Route: 048
     Dates: start: 20040215, end: 20040216
  2. DIAZEPAM [Concomitant]
     Route: 048
     Dates: start: 20040130, end: 20040216

REACTIONS (8)
  - CLONIC CONVULSION [None]
  - DEHYDRATION [None]
  - DELIRIUM [None]
  - DEPRESSED LEVEL OF CONSCIOUSNESS [None]
  - HYPERCHLORAEMIA [None]
  - HYPERNATRAEMIA [None]
  - HYPERTHERMIA [None]
  - PNEUMONIA [None]
